FAERS Safety Report 5159614-6 (Version None)
Quarter: 2006Q4

REPORT INFORMATION
  Report Type: 
  Country: None (occurrence: None)
  Receive Date: 20061129
  Receipt Date: 20061031
  Transmission Date: 20070319
  Serious: Yes (Disabling)
  Sender: FDA-Public Use
  Company Number: PHEH2006US13599

PATIENT
  Sex: Female

DRUGS (2)
  1. CYMBALTA [Concomitant]
  2. TRILEPTAL [Suspect]
     Indication: BIPOLAR DISORDER
     Dosage: UNK, UNK
     Dates: start: 20040101

REACTIONS (3)
  - BRADYPHRENIA [None]
  - DISABILITY [None]
  - THERAPEUTIC RESPONSE UNEXPECTED [None]
